FAERS Safety Report 20865449 (Version 1)
Quarter: 2022Q2

REPORT INFORMATION
  Report Type: Spontaneous
  Country: GB (occurrence: GB)
  Receive Date: 20220524
  Receipt Date: 20220524
  Transmission Date: 20220721
  Serious: Yes (Other)
  Sender: FDA-Public Use
  Company Number: GB-SUN PHARMACEUTICAL INDUSTRIES LTD-2022RR-337727

PATIENT
  Age: 54 Year
  Sex: Male

DRUGS (5)
  1. PEMETREXED [Suspect]
     Active Substance: PEMETREXED
     Indication: Pleural mesothelioma malignant
     Dosage: UNK, 6 CYCLES
     Route: 065
     Dates: start: 201308, end: 201312
  2. PEMETREXED [Suspect]
     Active Substance: PEMETREXED
     Dosage: UNK, 6 CYCLES
     Route: 065
     Dates: start: 201601, end: 201605
  3. CISPLATIN [Suspect]
     Active Substance: CISPLATIN
     Indication: Pleural mesothelioma malignant
     Dosage: UNK, 6 CYCLES
     Route: 065
     Dates: start: 201308, end: 201312
  4. CARBOPLATIN [Suspect]
     Active Substance: CARBOPLATIN
     Indication: Pleural mesothelioma malignant
     Dosage: UNK, 6 CYCLES
     Route: 065
     Dates: start: 201601, end: 201605
  5. BEVACIZUMAB [Suspect]
     Active Substance: BEVACIZUMAB
     Indication: Pleural mesothelioma malignant
     Dosage: UNK, 6 CYCLES
     Route: 065
     Dates: start: 201601, end: 201605

REACTIONS (2)
  - Malignant neoplasm progression [Unknown]
  - Disease recurrence [Unknown]
